FAERS Safety Report 6436362-3 (Version None)
Quarter: 2009Q4

REPORT INFORMATION
  Report Type: 
  Country: None (occurrence: None)
  Receive Date: 20091111
  Receipt Date: 20091027
  Transmission Date: 20100525
  Serious: Yes (Other)
  Sender: FDA-Public Use
  Company Number: BR-PFIZER INC-2009209306

PATIENT
  Age: 74 Year
  Sex: Female

DRUGS (3)
  1. LIPITOR [Suspect]
     Indication: BLOOD CHOLESTEROL INCREASED
     Dosage: 10 MG, 1X/DAY
     Route: 048
     Dates: start: 20020101, end: 20080101
  2. LIPITOR [Suspect]
     Indication: DYSLIPIDAEMIA
  3. FOLIFER [Concomitant]
     Indication: ANAEMIA
     Dosage: 5 MG, UNK

REACTIONS (7)
  - AXONAL NEUROPATHY [None]
  - CORONARY ARTERY INSUFFICIENCY [None]
  - DEPRESSION [None]
  - FALL [None]
  - FRACTURE [None]
  - GAIT DISTURBANCE [None]
  - MUSCULAR WEAKNESS [None]
